FAERS Safety Report 10496366 (Version 7)
Quarter: 2015Q1

REPORT INFORMATION
  Report Type: Report from Study
  Country: US (occurrence: US)
  Receive Date: 20141003
  Receipt Date: 20150112
  Transmission Date: 20150720
  Serious: Yes (Hospitalization)
  Sender: FDA-Public Use
  Company Number: US-ACTELION-A-US2014-106129

PATIENT
  Age: 63 Year
  Sex: Female

DRUGS (2)
  1. VENTAVIS [Suspect]
     Active Substance: ILOPROST
     Indication: PULMONARY ARTERIAL HYPERTENSION
     Dosage: 5 MCG, 5-9X/DAY
     Route: 055
     Dates: start: 20070827
  2. ADCIRCA [Concomitant]
     Active Substance: TADALAFIL

REACTIONS (10)
  - Pneumonia [Unknown]
  - Blood potassium decreased [Unknown]
  - Fall [Unknown]
  - Hip fracture [Unknown]
  - Rehabilitation therapy [Unknown]
  - Incoherent [Unknown]
  - Head injury [Unknown]
  - Blood sodium decreased [Unknown]
  - Oedema peripheral [Unknown]
  - Infection [Unknown]
